FAERS Safety Report 7247921-2 (Version None)
Quarter: 2011Q1

REPORT INFORMATION
  Report Type: 
  Country: None (occurrence: None)
  Receive Date: 20110127
  Receipt Date: 20110121
  Transmission Date: 20110831
  Serious: No
  Sender: FDA-Public Use
  Company Number: US-PFIZER INC-2011015669

PATIENT
  Sex: Male
  Weight: 88.4 kg

DRUGS (2)
  1. EFFEXOR XR [Suspect]
     Indication: DEPRESSION
     Dosage: 150 MG, 1X/DAY
     Route: 048
     Dates: start: 20101201
  2. DIAZEPAM [Concomitant]
     Indication: ANXIETY
     Dosage: UNK

REACTIONS (3)
  - PHOTOPHOBIA [None]
  - SUNBURN [None]
  - OCULAR HYPERAEMIA [None]
